FAERS Safety Report 25915800 (Version 1)
Quarter: 2025Q4

REPORT INFORMATION
  Report Type: Other
  Country: US (occurrence: US)
  Receive Date: 20251013
  Receipt Date: 20251013
  Transmission Date: 20260118
  Serious: Yes (Other)
  Sender: FAGRON COMPOUNDING SERVICES D/B/A FAGRON STERILE SERVICES, WICHITA, KS
  Company Number: US-Fagron Sterile Services-2186499

PATIENT

DRUGS (1)
  1. CYCLOPENTOLATE\KETOROLAC\PHENYLEPHRINE\TROPICAMIDE [Suspect]
     Active Substance: CYCLOPENTOLATE\KETOROLAC\PHENYLEPHRINE\TROPICAMIDE

REACTIONS (1)
  - Drug ineffective [Recovered/Resolved]
